FAERS Safety Report 5381668-2 (Version None)
Quarter: 2007Q3

REPORT INFORMATION
  Report Type: 
  Country: None (occurrence: None)
  Receive Date: 20070709
  Receipt Date: 20070628
  Transmission Date: 20080115
  Serious: Yes (Hospitalization, Disabling)
  Sender: FDA-Public Use
  Company Number: NL-AMGEN-US172467

PATIENT
  Sex: Female
  Weight: 88 kg

DRUGS (7)
  1. ENBREL [Suspect]
     Indication: RHEUMATOID ARTHRITIS
     Route: 058
     Dates: start: 20051114, end: 20060101
  2. ISONIAZID [Suspect]
     Indication: LATENT TUBERCULOSIS
     Dates: start: 20050906, end: 20060105
  3. PREDNISOLONE [Concomitant]
     Indication: RHEUMATOID ARTHRITIS
     Dates: start: 20010101
  4. NORVASC [Concomitant]
     Dosage: UNKNOWN
     Dates: start: 20050101
  5. PYRIDOXINE HCL [Concomitant]
     Indication: VITAMIN SUPPLEMENTATION
     Dates: start: 20050905
  6. ACTONEL [Concomitant]
     Dates: start: 20040101
  7. PERINDOPRIL ERBUMINE [Concomitant]
     Indication: HYPERTENSION
     Dosage: UNKNOWN
     Dates: start: 20030101

REACTIONS (4)
  - BEDRIDDEN [None]
  - INAPPROPRIATE ANTIDIURETIC HORMONE SECRETION [None]
  - OEDEMA PERIPHERAL [None]
  - PARAPARESIS [None]
